FAERS Safety Report 9122763 (Version 7)
Quarter: 2016Q1

REPORT INFORMATION
  Report Type: Spontaneous
  Country: US (occurrence: US)
  Receive Date: 20130115
  Receipt Date: 20160203
  Transmission Date: 20160526
  Serious: Yes (Other)
  Sender: FDA-Public Use
  Company Number: US-UCBSA-074864

PATIENT
  Sex: Male
  Weight: 124 kg

DRUGS (18)
  1. DILANTIN [Concomitant]
     Active Substance: PHENYTOIN
     Indication: SEIZURE
     Dosage: UNKNOWN DOSE
     Dates: start: 2009
  2. VIMPAT [Suspect]
     Active Substance: LACOSAMIDE
     Dosage: 200 MG 2/DAY
     Route: 048
  3. NOVOLOG [Concomitant]
     Active Substance: INSULIN ASPART
     Dosage: UNKNOWN DOSE
  4. ATIVAN [Concomitant]
     Active Substance: LORAZEPAM
     Dosage: 1 MG TABLET  0.5 - 1 TABLET ONCE IN 8 HOURS AS REQUIRED
  5. LIPITOR [Concomitant]
     Active Substance: ATORVASTATIN CALCIUM
     Dosage: UNKNOWN DOSE
  6. VIMPAT [Suspect]
     Active Substance: LACOSAMIDE
     Indication: SEIZURE
     Dosage: UNKNOWN DOSE
     Route: 048
     Dates: start: 201106, end: 2011
  7. VIMPAT [Suspect]
     Active Substance: LACOSAMIDE
     Dosage: 200 MG, 3X/DAY (TID)
     Route: 048
     Dates: start: 2013
  8. DILANTIN [Concomitant]
     Active Substance: PHENYTOIN
     Dosage: CHEWABLE TABLET 2 DAILY, THEN 1 DAILY FOR 6 WEEKS DAILY
  9. BENICAR [Concomitant]
     Active Substance: OLMESARTAN MEDOXOMIL
     Dosage: UNKNOWN DOSE
  10. LANTUS [Concomitant]
     Active Substance: INSULIN GLARGINE
     Dosage: UNKNOWN DOSE
  11. KEPPRA XR [Suspect]
     Active Substance: LEVETIRACETAM
     Indication: SEIZURE
     Dosage: 500 MG, 4 TABLETS ONCE A DAY
     Route: 048
     Dates: start: 201201
  12. KEPPRA XR [Suspect]
     Active Substance: LEVETIRACETAM
     Dosage: 500 MG TABLETS FOUR
     Route: 048
  13. SPIRIVA [Concomitant]
     Active Substance: TIOTROPIUM BROMIDE MONOHYDRATE
     Dosage: UNKNOWN DOSE
  14. ASPIRIN. [Concomitant]
     Active Substance: ASPIRIN
  15. KEPPRA XR [Suspect]
     Active Substance: LEVETIRACETAM
     Dosage: 500 MG 5 TABLETS ONCE A DAY IN NOON
     Route: 048
     Dates: start: 2013
  16. NITROSTAT [Concomitant]
     Active Substance: NITROGLYCERIN
     Dosage: UNKNOWN DOSE
  17. ADVAIR DISKUS [Concomitant]
     Active Substance: FLUTICASONE PROPIONATE\SALMETEROL XINAFOATE
     Dosage: UNKNOWN DOSE
  18. METOPROLOL SUCCINATE. [Concomitant]
     Active Substance: METOPROLOL SUCCINATE
     Dosage: UNKNOWN DOSE

REACTIONS (6)
  - Inappropriate schedule of drug administration [Unknown]
  - Anxiety [Unknown]
  - Seizure [Recovering/Resolving]
  - Overdose [Unknown]
  - Diplopia [Unknown]
  - Fatigue [Unknown]

NARRATIVE: CASE EVENT DATE: 2011
